FAERS Safety Report 6944929-9 (Version None)
Quarter: 2010Q3

REPORT INFORMATION
  Report Type: 
  Country: None (occurrence: None)
  Receive Date: 20100827
  Receipt Date: 20100819
  Transmission Date: 20110219
  Serious: Yes (Hospitalization, Disabling, Other)
  Sender: FDA-Public Use
  Company Number: IT-B.I. PHARMACEUTICALS,INC./RIDGEFIELD-2010-DE-04532GD

PATIENT
  Age: 66 Year
  Sex: Male

DRUGS (1)
  1. PRAMIPEXOLE [Suspect]
     Indication: PARKINSON'S DISEASE
     Dosage: 3 MG

REACTIONS (6)
  - DEPRESSION [None]
  - EXCESSIVE EXERCISE [None]
  - HYPERTENSIVE CRISIS [None]
  - IRRITABILITY [None]
  - NERVOUSNESS [None]
  - WITHDRAWAL SYNDROME [None]
